FAERS Safety Report 5273258-7 (Version None)
Quarter: 2007Q1

REPORT INFORMATION
  Report Type: 
  Country: None (occurrence: None)
  Receive Date: 20070315
  Receipt Date: 20070309
  Transmission Date: 20070707
  Serious: Yes (Hospitalization)
  Sender: FDA-Public Use
  Company Number: 2007-155148-NL

PATIENT
  Age: 65 Year
  Sex: Female

DRUGS (4)
  1. DEXAMETHASONE [Suspect]
     Indication: ANGLE CLOSURE GLAUCOMA
     Dosage: NI TOPICAL
     Route: 061
  2. ACETAZOLAMIDE [Suspect]
     Indication: ANGLE CLOSURE GLAUCOMA
     Dosage: NI INTRAVENOUS (NOS)
     Route: 042
  3. APRACLONIDINE [Suspect]
     Indication: ANGLE CLOSURE GLAUCOMA
  4. PILOCARPINE [Suspect]
     Indication: ANGLE CLOSURE GLAUCOMA

REACTIONS (4)
  - MIOSIS [None]
  - RETINAL HAEMORRHAGE [None]
  - RETINAL VEIN OCCLUSION [None]
  - RETINOPATHY [None]
